FAERS Safety Report 10289169 (Version 2)
Quarter: 2015Q3

REPORT INFORMATION
  Report Type: Spontaneous
  Country: CL (occurrence: CL)
  Receive Date: 20140710
  Receipt Date: 20150928
  Transmission Date: 20151125
  Serious: Yes (Other)
  Sender: FDA-Public Use
  Company Number: CL-PFIZER INC-2014187166

PATIENT
  Age: 81 Year
  Sex: Female

DRUGS (6)
  1. ASPIRIN ^BAYER^ [Concomitant]
     Active Substance: ASPIRIN
     Dosage: 1 DF, 1X/DAY
  2. XALATAN [Suspect]
     Active Substance: LATANOPROST
     Dosage: 1 GTT, 2X/DAY
     Dates: start: 2007
  3. GLAFORNIL [Concomitant]
     Dosage: 0.5 DF, 1X/DAY
  4. ACETAMINOPHEN. [Concomitant]
     Active Substance: ACETAMINOPHEN
     Dosage: 1 DF, 1X/DAY
  5. OMEPRAZOLE. [Concomitant]
     Active Substance: OMEPRAZOLE
     Dosage: 1 DF, 1X/DAY
  6. LEVOFERIN [Concomitant]
     Dosage: 0.5 DF, 6X/DAY

REACTIONS (3)
  - Disease progression [Not Recovered/Not Resolved]
  - Incorrect dosage administered [Unknown]
  - Parkinson^s disease [Not Recovered/Not Resolved]

NARRATIVE: CASE EVENT DATE: 2007
